FAERS Safety Report 19078364 (Version 1)
Quarter: 2021Q1

REPORT INFORMATION
  Report Type: Report from Study
  Country: IT (occurrence: IT)
  Receive Date: 20210331
  Receipt Date: 20210331
  Transmission Date: 20210420
  Serious: Yes (Hospitalization)
  Sender: FDA-Public Use
  Company Number: IT-PFIZER INC-2021322522

PATIENT
  Age: 13 Year
  Sex: Female
  Weight: 60 kg

DRUGS (2)
  1. XANAX [Suspect]
     Active Substance: ALPRAZOLAM
     Dosage: 3 MG, TOTAL
     Route: 048
     Dates: start: 20210113, end: 20210113
  2. NEO FURADANTIN [Suspect]
     Active Substance: NITROFURANTOIN
     Dosage: 150 MG, TOTAL
     Route: 048
     Dates: start: 20210113, end: 20210113

REACTIONS (5)
  - Sopor [Recovered/Resolved]
  - Bradykinesia [Recovered/Resolved]
  - Intentional self-injury [Recovered/Resolved]
  - Drug abuse [Recovered/Resolved]
  - Slow speech [Recovered/Resolved]

NARRATIVE: CASE EVENT DATE: 20210113
